FAERS Safety Report 9795988 (Version 1)
Quarter: 2014Q1

REPORT INFORMATION
  Report Type: Spontaneous
  Country: TR (occurrence: TR)
  Receive Date: 20140103
  Receipt Date: 20140103
  Transmission Date: 20141002
  Serious: Yes (Death)
  Sender: FDA-Public Use
  Company Number: TR-CUBIST PHARMACEUTICAL, INC.-2013CBST001411

PATIENT
  Sex: 0

DRUGS (3)
  1. CUBICIN [Suspect]
     Indication: ENTEROCOCCAL INFECTION
     Dosage: UNK, UNK, UNK
     Route: 065
  2. CUBICIN [Suspect]
     Indication: OFF LABEL USE
  3. LINEZOLID [Suspect]
     Indication: ENTEROCOCCAL INFECTION
     Dosage: UNK UNK UNK
     Route: 065

REACTIONS (1)
  - Death [Fatal]
